FAERS Safety Report 9341572 (Version 1)
Quarter: 2013Q2

REPORT INFORMATION
  Report Type: Report from Study
  Country: US (occurrence: US)
  Receive Date: 20130611
  Receipt Date: 20130611
  Transmission Date: 20140414
  Serious: Yes (Death)
  Sender: FDA-Public Use
  Company Number: US-SANOFI-AVENTIS-2013SA058554

PATIENT
  Sex: 0

DRUGS (4)
  1. DOCETAXEL [Suspect]
     Indication: NON-SMALL CELL LUNG CANCER
     Dosage: ADMINISTERED OVER 1 HR, ON DAY 1 OF A 21 DAY CYCLE
     Route: 042
  2. CARBOPLATIN [Suspect]
     Indication: NON-SMALL CELL LUNG CANCER
     Dosage: ADMINISTERED OVER 15 TO 30 MINS AT AN AUC OF 6 ON DAY 1
     Route: 065
  3. VANDETANIB [Suspect]
     Indication: NON-SMALL CELL LUNG CANCER
     Route: 048
  4. DEXAMETHASONE [Concomitant]
     Indication: PREMEDICATION

REACTIONS (1)
  - Cerebral ischaemia [Fatal]
